FAERS Safety Report 10957504 (Version 2)
Quarter: 2015Q2

REPORT INFORMATION
  Report Type: Spontaneous
  Country: KR (occurrence: KR)
  Receive Date: 20150326
  Receipt Date: 20150403
  Transmission Date: 20150821
  Serious: Yes (Other)
  Sender: FDA-Public Use
  Company Number: KR-009507513-1503KOR008126

PATIENT
  Age: 58 Year
  Sex: Female
  Weight: 55 kg

DRUGS (43)
  1. BRIDION [Suspect]
     Active Substance: SUGAMMADEX
     Indication: NEUROMUSCULAR BLOCKADE REVERSAL
     Dosage: 110 MG, ONCE (DOSE ALSO REPORTED AS  2MG/KG)
     Route: 042
     Dates: start: 20150209, end: 20150209
  2. NASEA [Concomitant]
     Active Substance: RAMOSETRON HYDROCHLORIDE
     Indication: PROPHYLAXIS OF NAUSEA AND VOMITING
     Dosage: 0.3 MG, FREQUENCY REPORTED AS ^1^, QD
     Route: 042
     Dates: start: 20150209, end: 201502
  3. LEGALON [Concomitant]
     Active Substance: MILK THISTLE
     Dosage: 140 MG, TWICE
     Route: 048
     Dates: start: 20150212, end: 20150212
  4. MOTILITONE [Concomitant]
     Active Substance: HERBALS
     Indication: PROPHYLAXIS
     Dosage: 30 MG, FREQUENCY REPORTED AS ^1^, TID
     Route: 048
     Dates: start: 20150213, end: 20150213
  5. GLIDE [Concomitant]
     Indication: DIABETES MELLITUS
     Dosage: 1 TABLET FREQUENCY REPORTED AS ^1^, BID
     Route: 048
     Dates: start: 20150213
  6. DICKNOL [Concomitant]
     Indication: PAIN PROPHYLAXIS
     Dosage: 90 MG, FREQUENCY REPORTED AS ^1^, QD
     Route: 030
     Dates: start: 20150214, end: 20150214
  7. HEXAMEDIN [Concomitant]
     Indication: PROPHYLAXIS
     Dosage: UNK, ONCE
     Route: 049
     Dates: start: 20150205, end: 20150205
  8. ZENOCEF (CEFAZEDONE SODIUM) [Concomitant]
     Indication: INFECTION PROPHYLAXIS
     Dosage: 1 G, FREQUENCY REPORTED AS ^2^, BID
     Route: 042
     Dates: start: 20150209, end: 20150209
  9. NORZYME [Concomitant]
     Indication: PROPHYLAXIS
     Dosage: 2 TABLETS FREQUENCY REPORTED AS ^1^, TID
     Route: 048
     Dates: start: 20150213
  10. PIOGLITAZONE HYDROCHLORIDE. [Concomitant]
     Active Substance: PIOGLITAZONE HYDROCHLORIDE
     Indication: DIABETES MELLITUS
     Dosage: 1 TABLET FREQUENCY REPORTED AS ^1^, QD
     Route: 048
     Dates: start: 20150213
  11. HUMULIN R [Concomitant]
     Active Substance: INSULIN HUMAN
     Indication: DIABETES MELLITUS
     Dosage: 10 UNIT, FREQUENCY REPORTED AS ^1^, DAILY
     Route: 058
     Dates: start: 20150209, end: 20150209
  12. HALCION [Concomitant]
     Active Substance: TRIAZOLAM
     Indication: PROPHYLAXIS
     Dosage: 0.25 MG, FREQUENCY REPORTED AS ^1^, ONCE
     Route: 048
     Dates: start: 20150209, end: 20150209
  13. TAMIPOOL [Concomitant]
     Dosage: 5 ML, FREQUENCY REPORTED AS ^1^, ONCE
     Route: 042
     Dates: start: 20150214, end: 20150214
  14. DIOVAN [Concomitant]
     Active Substance: VALSARTAN
     Indication: HYPERTENSION
     Dosage: 80 MG, FREQUENCY REPORTED AS ^1^, QD
     Route: 048
     Dates: start: 20150211, end: 20150213
  15. MEGACE [Concomitant]
     Active Substance: MEGESTROL ACETATE
     Indication: PROPHYLAXIS
     Dosage: 10 ML, FREQUENCY REPORTED AS ^1^, QD
     Route: 048
     Dates: start: 20150215
  16. ROCURONIUM BROMIDE. [Suspect]
     Active Substance: ROCURONIUM BROMIDE
     Dosage: 50MG, ADDITIONAL DOSE UNTIL THE END OF SURGERY
     Route: 042
     Dates: start: 20150209, end: 20150209
  17. NASEA [Concomitant]
     Active Substance: RAMOSETRON HYDROCHLORIDE
     Dosage: 0.6 MG, FREQUENCY REPORTED AS ^1^, QD
     Route: 051
  18. FENTANYL CITRATE. [Concomitant]
     Active Substance: FENTANYL CITRATE
     Dosage: 1500 MCG FREQUENCY REPORTED AS ^1^, QD
     Route: 051
     Dates: start: 20150209, end: 20150211
  19. RANITIDINE HYDROCHLORIDE. [Concomitant]
     Active Substance: RANITIDINE HYDROCHLORIDE
     Indication: PROPHYLAXIS
     Dosage: 150 MG, FREQUENCY REPORTED AS ^1^, ONCE
     Route: 048
     Dates: start: 20150205, end: 20150205
  20. XEROVA [Concomitant]
     Indication: PROPHYLAXIS
     Dosage: UNK, FREQUENCY REPORTED AS ^1^, ONCE
     Route: 049
     Dates: start: 20150209, end: 20150209
  21. ACUPAN [Concomitant]
     Active Substance: NEFOPAM HYDROCHLORIDE
     Dosage: 200 MG, FREQUENCY REPORTED AS ^1^, QD
     Route: 051
     Dates: start: 20150209, end: 20150211
  22. HUMULIN R [Concomitant]
     Active Substance: INSULIN HUMAN
     Dosage: 10 UNIT ADMINISTERED, QD
     Route: 058
     Dates: start: 20150213, end: 20150213
  23. ONGLYZA [Concomitant]
     Active Substance: SAXAGLIPTIN HYDROCHLORIDE
     Indication: DIABETES MELLITUS
     Dosage: 5 MG, FREQUENCY REPORTED AS ^1^, QD
     Route: 048
     Dates: start: 20150213
  24. EPHEDRINE HYDROCHLORIDE [Concomitant]
     Active Substance: EPHEDRINE HYDROCHLORIDE
     Indication: BLOOD PRESSURE INCREASED
     Dosage: 10 MG, QD
     Route: 042
     Dates: start: 20150209
  25. FENTANYL CITRATE. [Concomitant]
     Active Substance: FENTANYL CITRATE
     Indication: PAIN PROPHYLAXIS
     Dosage: 100 MICROGRAM, FREQUENCY REPORTED AS ^1^, QD
     Route: 008
     Dates: start: 20150209, end: 201502
  26. ATORVASTATIN CALCIUM. [Concomitant]
     Active Substance: ATORVASTATIN CALCIUM
     Indication: PROPHYLAXIS
     Dosage: 10 MG,FREQUENCY REPORTED AS ^1^, ONCE
     Route: 048
     Dates: start: 20150205, end: 20150205
  27. HUMULIN R [Concomitant]
     Active Substance: INSULIN HUMAN
     Dosage: 10 UNIT, 5 UNIT, DAILY
     Route: 058
     Dates: start: 20150210, end: 20150210
  28. HUMULIN R [Concomitant]
     Active Substance: INSULIN HUMAN
     Dosage: 10 UNIT, BID
     Route: 058
     Dates: start: 20150211, end: 20150211
  29. ZIPAN (TRAMADOL HYDROCHLORIDE) [Concomitant]
     Indication: PAIN PROPHYLAXIS
     Dosage: 50 MG, FREQUENCY REPORTED AS ^1^, ONCE
     Route: 042
     Dates: start: 20150209, end: 20150209
  30. ROCURONIUM BROMIDE. [Suspect]
     Active Substance: ROCURONIUM BROMIDE
     Indication: HYPOTONIA
     Dosage: 50MG, INITIAL DOSE
     Route: 042
     Dates: start: 20150209, end: 20150209
  31. ACUPAN [Concomitant]
     Active Substance: NEFOPAM HYDROCHLORIDE
     Indication: PAIN PROPHYLAXIS
     Dosage: 20 MG, FREQUENCY REPORTED AS ^1^, QD
     Route: 008
     Dates: start: 20150209, end: 201502
  32. ATORVASTATIN CALCIUM. [Concomitant]
     Active Substance: ATORVASTATIN CALCIUM
     Dosage: 10 MG, FREQUENCY REPORTED AS ^1^, QD
     Route: 048
     Dates: start: 20150214, end: 20150216
  33. LEGALON [Concomitant]
     Active Substance: MILK THISTLE
     Dosage: 140 MG, FREQUENCY REPORTED AS ^3^, TID
     Route: 048
     Dates: start: 20150213, end: 20150215
  34. STILLEN [Concomitant]
     Indication: PROPHYLAXIS
     Dosage: 60 MG, FREQUENCY REPORTED AS ^1^,TID
     Route: 048
     Dates: start: 20150213
  35. PHENYLEPHRINE HYDROCHLORIDE. [Concomitant]
     Active Substance: PHENYLEPHRINE HYDROCHLORIDE
     Indication: TACHYCARDIA
     Dosage: 0.1 MG, ONCE
     Route: 042
     Dates: start: 20150209, end: 20150209
  36. ZIBOR [Concomitant]
     Indication: THROMBOSIS PROPHYLAXIS
     Dosage: 2500 IU, FREQUENCY REPORTED AS ^1^, QD
     Route: 058
     Dates: start: 20150210, end: 20150215
  37. TAMIPOOL [Concomitant]
     Indication: VITAMIN SUPPLEMENTATION
     Dosage: 5 ML, FREQUENCY REPORTED AS ^1^, ONCE
     Route: 042
     Dates: start: 20150210, end: 20150210
  38. TAMIPOOL [Concomitant]
     Dosage: 5 ML, FREQUENCY REPORTED AS ^1^, ONCE
     Route: 042
     Dates: start: 20150212, end: 20150212
  39. URSA TABLETS [Concomitant]
     Indication: PROPHYLAXIS
     Dosage: 100 MG, FREQUENCY REPORTED AS ^1^, ONCE
     Route: 048
     Dates: start: 20150210, end: 20150210
  40. ACUPAN [Concomitant]
     Active Substance: NEFOPAM HYDROCHLORIDE
     Indication: PAIN PROPHYLAXIS
     Dosage: 100 MG, FREQUENCY REPORTED AS ^1^, ONCE
     Route: 042
     Dates: start: 20150211, end: 20150211
  41. MOBIC [Concomitant]
     Active Substance: MELOXICAM
     Indication: PROPHYLAXIS
     Dosage: 7.5 MG, FREQUENCY REPORTED AS ^1^, QD
     Route: 048
     Dates: start: 20150212
  42. PANRAZOL [Concomitant]
     Active Substance: PANTOPRAZOLE SODIUM
     Indication: PROPHYLAXIS
     Dosage: 20 MG, FREQUENCY REPORTED AS ^1^, QD
     Route: 048
     Dates: start: 20150213
  43. METFORMIN HYDROCHLORIDE. [Concomitant]
     Active Substance: METFORMIN HYDROCHLORIDE
     Indication: DIABETES MELLITUS
     Dosage: 250 MG, FREQUENCY REPORTED AS ^1^, QD
     Route: 048
     Dates: start: 20150214

REACTIONS (5)
  - Hypertensive crisis [Recovered/Resolved]
  - Diarrhoea [Recovered/Resolved]
  - Abdominal discomfort [Recovered/Resolved]
  - Dyspepsia [Recovered/Resolved]
  - Dizziness [Recovered/Resolved]

NARRATIVE: CASE EVENT DATE: 20150209
